FAERS Safety Report 21405774 (Version 3)
Quarter: 2022Q4

REPORT INFORMATION
  Report Type: Spontaneous
  Country: JP (occurrence: JP)
  Receive Date: 20221004
  Receipt Date: 20221024
  Transmission Date: 20230113
  Serious: Yes (Other)
  Sender: FDA-Public Use
  Company Number: JP-NOVARTISPH-NVSJ2022JP097885

PATIENT
  Age: 79 Year
  Sex: Female

DRUGS (2)
  1. BEOVU [Suspect]
     Active Substance: BROLUCIZUMAB-DBLL
     Indication: Age-related macular degeneration
     Dosage: 6 MG
     Route: 031
     Dates: start: 20220802, end: 20220802
  2. BEOVU [Suspect]
     Active Substance: BROLUCIZUMAB-DBLL
     Dosage: 6 MG
     Route: 031
     Dates: start: 20220914, end: 20220914

REACTIONS (7)
  - Eye inflammation [Recovering/Resolving]
  - Visual acuity reduced transiently [Recovered/Resolved]
  - Anterior chamber inflammation [Unknown]
  - Vitreous opacities [Recovered/Resolved]
  - Anterior chamber cell [Unknown]
  - Vision blurred [Recovering/Resolving]
  - Keratic precipitates [Recovered/Resolved]

NARRATIVE: CASE EVENT DATE: 20220914
